FAERS Safety Report 9193995 (Version 3)
Quarter: 2013Q2

REPORT INFORMATION
  Report Type: Spontaneous
  Country: JP (occurrence: JP)
  Receive Date: 20130327
  Receipt Date: 20130422
  Transmission Date: 20140414
  Serious: Yes (Life-Threatening, Other)
  Sender: FDA-Public Use
  Company Number: JP-BAYER-2013-037195

PATIENT
  Age: 46 Year
  Sex: Female

DRUGS (10)
  1. BAYASPIRIN [Suspect]
     Indication: ANTIPHOSPHOLIPID SYNDROME
     Dosage: DAILY DOSE 100 MG
     Route: 048
     Dates: start: 1991, end: 20111207
  2. BAYASPIRIN [Suspect]
     Indication: LUPUS ENCEPHALITIS
  3. WARFARIN POTASSIUM [Suspect]
     Indication: BRAIN STEM INFARCTION
     Dosage: DAILY DOSE 3 MG
     Route: 048
     Dates: start: 200403
  4. PREDONINE [Concomitant]
     Indication: SYSTEMIC LUPUS ERYTHEMATOSUS
     Dosage: DAILY DOSE 10 MG
     Route: 048
     Dates: start: 1991
  5. PREDNISOLONE [Concomitant]
     Indication: SYSTEMIC LUPUS ERYTHEMATOSUS
     Dosage: DAILY DOSE 3 MG
     Route: 048
     Dates: start: 1991
  6. OPALMON [Concomitant]
     Indication: SYSTEMIC LUPUS ERYTHEMATOSUS
     Dosage: DAILY DOSE 30 MG
     Route: 048
  7. KETAS [Concomitant]
     Indication: CEREBRAL INFARCTION
     Dosage: DAILY DOSE 30 MG
     Route: 048
  8. MEVALOTIN [Concomitant]
     Indication: HYPERLIPIDAEMIA
     Dosage: DAILY DOSE 20 MG
     Route: 048
  9. TERNELIN [Concomitant]
     Indication: CEREBRAL INFARCTION
     Dosage: DAILY DOSE 3 MG
     Route: 048
  10. URSO [Concomitant]
     Indication: LIVER DISORDER
     Dosage: DAILY DOSE 300 MG
     Route: 048

REACTIONS (5)
  - Brain stem infarction [None]
  - Ischaemic cerebral infarction [None]
  - Subarachnoid haemorrhage [Recovered/Resolved]
  - Carotid artery stenosis [None]
  - Labelled drug-drug interaction medication error [None]
